FAERS Safety Report 4884511-0 (Version None)
Quarter: 2005Q4

REPORT INFORMATION
  Report Type: 
  Country: None (occurrence: None)
  Receive Date: 20051201
  Receipt Date: 20050912
  Transmission Date: 20060501
  Serious: No
  Sender: FDA-Public Use
  Company Number: 2005PV002027

PATIENT
  Age: 55 Year
  Sex: Female
  Weight: 138.3471 kg

DRUGS (5)
  1. BYETTA [Suspect]
     Indication: DIABETES MELLITUS NON-INSULIN-DEPENDENT
     Dosage: 5 MCG;BID;SC
     Route: 058
     Dates: start: 20050826
  2. REGULAR INSULIN [Concomitant]
  3. GLUCOPHAGE [Concomitant]
  4. PREDNISONE TAB [Concomitant]
  5. BLOOD PRESSURE MEDS [Concomitant]

REACTIONS (3)
  - DRUG EFFECT DECREASED [None]
  - INJECTION SITE PAIN [None]
  - WEIGHT DECREASED [None]
